FAERS Safety Report 5575691-2 (Version None)
Quarter: 2007Q4

REPORT INFORMATION
  Report Type: 
  Country: None (occurrence: None)
  Receive Date: 20071221
  Receipt Date: 20071210
  Transmission Date: 20080405
  Serious: Yes (Hospitalization)
  Sender: FDA-Public Use
  Company Number: S07-FRA-06406-01

PATIENT
  Age: 97 Year
  Sex: Female

DRUGS (13)
  1. SEROPRAM (CITALOPRAM HYDROBROMIDE) [Suspect]
     Dosage: 20 MG QD PO
     Route: 048
     Dates: start: 20071011, end: 20071103
  2. BRICANYL [Suspect]
     Dosage: 20 MG QD IH
     Route: 055
     Dates: start: 20071010, end: 20071031
  3. ATROVENT [Suspect]
     Dosage: 1.5 MG QD IH
     Route: 055
     Dates: start: 20071010, end: 20071031
  4. COUMADIN [Concomitant]
  5. CACIT D3 [Concomitant]
  6. CORDARONE [Concomitant]
  7. SERETIDE DISKUS [Concomitant]
  8. DIGOXIN [Concomitant]
  9. VENTOLIN [Concomitant]
  10. BECONASE [Concomitant]
  11. IMOVANE (ZOPICLONE) [Concomitant]
  12. HALDOL [Concomitant]
  13. PAROXETINE HCL [Concomitant]

REACTIONS (2)
  - INTENTION TREMOR [None]
  - PARKINSONISM [None]
